FAERS Safety Report 7553342-5 (Version None)
Quarter: 2011Q2

REPORT INFORMATION
  Report Type: 
  Country: None (occurrence: None)
  Receive Date: 20110617
  Receipt Date: 20110609
  Transmission Date: 20111010
  Serious: Yes (Other)
  Sender: FDA-Public Use
  Company Number: NL-AMGEN-NLDSP2011030058

PATIENT
  Age: 59 Year
  Sex: Male

DRUGS (5)
  1. ARCOXIA [Concomitant]
     Dosage: UNK UNK, UNK
  2. MTX                                /00113802/ [Concomitant]
     Dosage: UNK UNK, UNK
  3. ENBREL [Suspect]
     Indication: RHEUMATOID ARTHRITIS
     Dosage: 50 MG, WEEKLY
     Dates: start: 20110421
  4. PREDNISONE [Concomitant]
     Dosage: UNK UNK, UNK
  5. FOLIC ACID [Concomitant]
     Dosage: UNK UNK, UNK

REACTIONS (2)
  - HEART RATE INCREASED [None]
  - DYSPNOEA [None]
